FAERS Safety Report 4359666-7 (Version None)
Quarter: 2004Q2

REPORT INFORMATION
  Report Type: 
  Country: None (occurrence: None)
  Receive Date: 20040513
  Receipt Date: 20040422
  Transmission Date: 20050107
  Serious: Yes (Other)
  Sender: FDA-Public Use
  Company Number: 2004030922

PATIENT
  Age: 64 Year
  Sex: Male

DRUGS (3)
  1. NORVASC [Suspect]
     Indication: HYPERTENSION
     Dosage: 2.5 MG (2.5 MG), ORAL
     Route: 048
     Dates: start: 20010401
  2. VALSARTAN (VALSARTAN) [Concomitant]
  3. STARLIX [Concomitant]

REACTIONS (3)
  - DIABETIC RETINOPATHY [None]
  - KERATOCONJUNCTIVITIS SICCA [None]
  - VISUAL DISTURBANCE [None]
